FAERS Safety Report 25791713 (Version 1)
Quarter: 2025Q3

REPORT INFORMATION
  Report Type: Report from Study
  Country: CA (occurrence: CA)
  Receive Date: 20250911
  Receipt Date: 20250911
  Transmission Date: 20251020
  Serious: Yes (Other)
  Sender: TAKEDA
  Company Number: CA-TAKEDA-2025TUS079206

PATIENT
  Sex: Male

DRUGS (6)
  1. VEDOLIZUMAB [Suspect]
     Active Substance: VEDOLIZUMAB
     Indication: Colitis ulcerative
  2. PREDNISONE [Concomitant]
     Active Substance: PREDNISONE
     Dosage: 20 MILLIGRAM, QD
     Dates: start: 202504
  3. MESALAMINE [Concomitant]
     Active Substance: MESALAMINE
     Dosage: 4.8 GRAM, QD
  4. HEPARIN [Concomitant]
     Active Substance: HEPARIN SODIUM
  5. FRAGMIN [Concomitant]
     Active Substance: DALTEPARIN SODIUM
  6. APIXABAN [Concomitant]
     Active Substance: APIXABAN

REACTIONS (1)
  - Colitis ulcerative [Not Recovered/Not Resolved]
